FAERS Safety Report 16880633 (Version 2)
Quarter: 2019Q4

REPORT INFORMATION
  Report Type: Report from Study
  Country: GB (occurrence: GB)
  Receive Date: 20191003
  Receipt Date: 20191010
  Transmission Date: 20200122
  Serious: Yes (Other)
  Sender: FDA-Public Use
  Company Number: GB-PFIZER INC-2019411872

PATIENT

DRUGS (2)
  1. KETAMINE HCL [Suspect]
     Active Substance: KETAMINE HYDROCHLORIDE
     Indication: SUICIDAL IDEATION
     Dosage: ONE ADMINISTRATION
     Route: 040
  2. KETAMINE HCL [Suspect]
     Active Substance: KETAMINE HYDROCHLORIDE
     Indication: DEPRESSION

REACTIONS (6)
  - Delusion [Unknown]
  - Hallucination [Unknown]
  - Condition aggravated [Unknown]
  - Intrusive thoughts [Unknown]
  - Administration related reaction [Unknown]
  - Dissociative disorder [Unknown]
